FAERS Safety Report 8989098 (Version 1)
Quarter: 2012Q4

REPORT INFORMATION
  Report Type: 
  Country: IN (occurrence: IN)
  Receive Date: 20121227
  Receipt Date: 20121227
  Transmission Date: 20130627
  Serious: Yes (Hospitalization, Other)
  Sender: FDA-Public Use
  Company Number: IN-B.I. PHARMACEUTICALS,INC./RIDGEFIELD-2012-BI-03870GD

PATIENT
  Age: 5 Year
  Sex: Male
  Weight: 15 kg

DRUGS (4)
  1. CLONIDINE [Suspect]
     Indication: SPINAL ANAESTHESIA
     Dosage: 1 mcg/kg
  2. BUPIVACAINE [Suspect]
     Indication: SPINAL ANAESTHESIA
     Dosage: 1 mL/kg of 0.25% bupivacaine
  3. O2:N2O [Concomitant]
     Indication: MAINTENANCE OF ANAESTHESIA
     Dosage: 1:1 mixture
  4. SEVOFLURANE [Concomitant]
     Indication: MAINTENANCE OF ANAESTHESIA
     Dosage: 2%

REACTIONS (5)
  - Tachycardia [Unknown]
  - Tachypnoea [Unknown]
  - Anaesthetic complication [Unknown]
  - Sensory loss [Unknown]
  - Neuromuscular blockade [Recovered/Resolved]
